FAERS Safety Report 16023128 (Version 1)
Quarter: 2019Q1

REPORT INFORMATION
  Report Type: Spontaneous
  Country: IL (occurrence: IL)
  Receive Date: 20190301
  Receipt Date: 20190301
  Transmission Date: 20190418
  Serious: Yes (Other)
  Sender: FDA-Public Use
  Company Number: IL-TARO PHARMACEUTICALS USA.,INC-2019SUN00092

PATIENT
  Age: 68 Year
  Sex: Female

DRUGS (1)
  1. COUMADIN [Suspect]
     Active Substance: WARFARIN SODIUM
     Indication: ATRIAL FIBRILLATION
     Dosage: UNK
     Route: 065

REACTIONS (5)
  - Corneal opacity [Recovered/Resolved]
  - Hyphaema [Recovered/Resolved]
  - Visual acuity reduced [Recovering/Resolving]
  - Intraocular pressure increased [Recovered/Resolved]
  - Iris haemorrhage [Recovered/Resolved]
